FAERS Safety Report 6593075-5 (Version None)
Quarter: 2010Q1

REPORT INFORMATION
  Report Type: 
  Country: None (occurrence: None)
  Receive Date: 20100218
  Receipt Date: 20100218
  Transmission Date: 20100710
  Serious: Yes (Hospitalization)
  Sender: FDA-Public Use
  Company Number: None

PATIENT
  Sex: Female
  Weight: 60.3284 kg

DRUGS (1)
  1. REMICADE [Suspect]
     Indication: CROHN'S DISEASE
     Dosage: EVERY 8 WEKS IV
     Route: 042
     Dates: start: 20091204

REACTIONS (7)
  - CARDIAC DISORDER [None]
  - FATIGUE [None]
  - LIVER DISORDER [None]
  - LUNG DISORDER [None]
  - PAIN [None]
  - PYREXIA [None]
  - RENAL DISORDER [None]
